FAERS Safety Report 9620775 (Version 2)
Quarter: 2014Q1

REPORT INFORMATION
  Report Type: Report from Study
  Country: BR (occurrence: BR)
  Receive Date: 20131015
  Receipt Date: 20140205
  Transmission Date: 20141002
  Serious: Yes (Other)
  Sender: FDA-Public Use
  Company Number: BR-ROCHE-1287178

PATIENT
  Sex: Female
  Weight: 81 kg

DRUGS (6)
  1. ACTEMRA [Suspect]
     Indication: RHEUMATOID ARTHRITIS
     Route: 065
     Dates: start: 20130901
  2. ACTEMRA [Suspect]
     Dosage: LAST INFUSION WAS DONE ON 01/JAN/2014.
     Route: 065
     Dates: start: 20140101
  3. PREDNISONE [Concomitant]
     Route: 065
  4. CYMBALTA [Concomitant]
  5. ARADOIS [Concomitant]
  6. RIVOTRIL [Concomitant]
     Indication: INSOMNIA

REACTIONS (7)
  - Arthralgia [Unknown]
  - Joint swelling [Unknown]
  - Pain in extremity [Unknown]
  - Pain in extremity [Unknown]
  - Musculoskeletal pain [Unknown]
  - Pain [Unknown]
  - Blood pressure increased [Unknown]
